FAERS Safety Report 20808603 (Version 1)
Quarter: 2022Q2

REPORT INFORMATION
  Report Type: Spontaneous
  Country: US (occurrence: None)
  Receive Date: 20220509
  Receipt Date: 20220509
  Transmission Date: 20220721
  Serious: Yes (Other)
  Sender: FDA-Public Use
  Company Number: None

PATIENT
  Age: 57 Year
  Sex: Male
  Weight: 121 kg

DRUGS (3)
  1. DOFETILIDE [Suspect]
     Active Substance: DOFETILIDE
     Indication: Rash
     Dosage: FREQUENCY : TWICE A DAY;?
     Route: 048
     Dates: start: 20210930, end: 20211002
  2. DOFETILIDE [Suspect]
     Active Substance: DOFETILIDE
     Indication: Stridor
  3. DOFETILIDE [Suspect]
     Active Substance: DOFETILIDE
     Indication: Swollen tongue

REACTIONS (9)
  - Angioedema [None]
  - Pruritus [None]
  - Rash papular [None]
  - Stridor [None]
  - Tachypnoea [None]
  - Cough [None]
  - Wheezing [None]
  - Urticaria [None]
  - Swollen tongue [None]

NARRATIVE: CASE EVENT DATE: 20211001
